FAERS Safety Report 10347615 (Version 3)
Quarter: 2014Q3

REPORT INFORMATION
  Report Type: Spontaneous
  Country: US (occurrence: None)
  Receive Date: 20140725
  Receipt Date: 20140825
  Transmission Date: 20150326
  Serious: Yes (Hospitalization, Other)
  Sender: FDA-Public Use
  Company Number: UNT-2014-004042

PATIENT
  Age: 58 Year
  Sex: Male
  Weight: 175.9 kg

DRUGS (4)
  1. LETAIRIS [Concomitant]
     Active Substance: AMBRISENTAN
  2. TYVASO [Suspect]
     Active Substance: TREPROSTINIL
     Indication: PULMONARY ARTERIAL HYPERTENSION
     Route: 055
     Dates: start: 20140626
  3. WARFARIN (WARFARIN) [Concomitant]
     Active Substance: WARFARIN
  4. ADCIRCA [Concomitant]
     Active Substance: TADALAFIL

REACTIONS (10)
  - Dyspnoea [None]
  - Bedridden [None]
  - Infection [None]
  - Gastrointestinal disorder [None]
  - Cardiac disorder [None]
  - Skin ulcer [None]
  - Pyrexia [None]
  - Fall [None]
  - Head injury [None]
  - Haemorrhage [None]

NARRATIVE: CASE EVENT DATE: 20140630
